FAERS Safety Report 8176192 (Version 2)
Quarter: 2012Q4

REPORT INFORMATION
  Report Type: 
  Country: FI (occurrence: FI)
  Receive Date: 20111011
  Receipt Date: 20121008
  Transmission Date: 20130627
  Serious: Yes (Disabling)
  Sender: FDA-Public Use
  Company Number: FI-SANOFI-AVENTIS-2011SA064997

PATIENT
  Age: 49 Year
  Sex: Female

DRUGS (9)
  1. STILNOCT [Suspect]
     Indication: INSOMNIA
     Dosage: Started ^over 10 years ago (NOS)^.
     Route: 048
  2. STILNOCT [Suspect]
     Indication: INSOMNIA
     Route: 048
     Dates: end: 201109
  3. QUETIAPINE FUMARATE [Concomitant]
     Indication: DEPRESSION
     Route: 048
     Dates: end: 2012
  4. QUETIAPINE FUMARATE [Concomitant]
     Indication: INSOMNIA
     Route: 048
     Dates: end: 2012
  5. EFEXOR - SLOW RELEASE [Concomitant]
     Indication: DEPRESSION
     Dosage: prolonged release capsule
     Route: 048
  6. EFEXOR - SLOW RELEASE [Concomitant]
     Indication: INSOMNIA
     Dosage: prolonged release capsule
     Route: 048
  7. SIMVASTATIN [Concomitant]
     Indication: LIPIDS ABNORMAL
     Route: 048
  8. TENOX [Concomitant]
     Indication: SEDATION
     Route: 048
     Dates: end: 2012
  9. AMLODIPINE [Concomitant]
     Route: 048

REACTIONS (7)
  - Road traffic accident [Unknown]
  - Somnambulism [Unknown]
  - Somnambulism [Unknown]
  - Amnesia [Unknown]
  - Memory impairment [Unknown]
  - Intentional overdose [Unknown]
  - Drug ineffective [Unknown]
